FAERS Safety Report 16411261 (Version 2)
Quarter: 2019Q2

REPORT INFORMATION
  Report Type: Spontaneous
  Country: US (occurrence: US)
  Receive Date: 20190610
  Receipt Date: 20190618
  Transmission Date: 20190711
  Serious: Yes (Death, Hospitalization, Other)
  Sender: FDA-Public Use
  Company Number: US-ASTRAZENECA-2018SF34851

PATIENT
  Age: 55 Year
  Sex: Female

DRUGS (26)
  1. NEXIUM [Suspect]
     Active Substance: ESOMEPRAZOLE MAGNESIUM
     Route: 048
     Dates: start: 20150101, end: 20161231
  2. ATORVASTATIN [Concomitant]
     Active Substance: ATORVASTATIN
  3. LEVEMIR [Concomitant]
     Active Substance: INSULIN DETEMIR
  4. AVAPRO [Concomitant]
     Active Substance: IRBESARTAN
  5. NEXIUM [Suspect]
     Active Substance: ESOMEPRAZOLE MAGNESIUM
     Route: 048
     Dates: start: 201501, end: 201612
  6. CLOPIDOGREL [Concomitant]
     Active Substance: CLOPIDOGREL BISULFATE
  7. EZETIMIBE. [Concomitant]
     Active Substance: EZETIMIBE
  8. ANTIVERT [Concomitant]
     Active Substance: MECLIZINE HYDROCHLORIDE
  9. PREVACID [Suspect]
     Active Substance: LANSOPRAZOLE
     Route: 065
     Dates: start: 201501, end: 201612
  10. CARVEDILOL. [Concomitant]
     Active Substance: CARVEDILOL
  11. AZTREONAM. [Concomitant]
     Active Substance: AZTREONAM
  12. DOCUSATE SODIUM. [Concomitant]
     Active Substance: DOCUSATE SODIUM
  13. NOVOLOG [Concomitant]
     Active Substance: INSULIN ASPART
  14. PROTONIX [Suspect]
     Active Substance: PANTOPRAZOLE SODIUM
     Route: 048
     Dates: start: 20151117
  15. ALBUTEROL. [Concomitant]
     Active Substance: ALBUTEROL
  16. IRBESARTAN. [Concomitant]
     Active Substance: IRBESARTAN
  17. REPAGLINIDE. [Concomitant]
     Active Substance: REPAGLINIDE
  18. NORVASC [Concomitant]
     Active Substance: AMLODIPINE BESYLATE
  19. BUMETANIDE. [Concomitant]
     Active Substance: BUMETANIDE
  20. COLACE [Concomitant]
     Active Substance: DOCUSATE SODIUM
  21. PROTONIX [Suspect]
     Active Substance: PANTOPRAZOLE SODIUM
     Route: 065
     Dates: start: 201501, end: 201612
  22. CIPROFLOXACIN. [Concomitant]
     Active Substance: CIPROFLOXACIN
  23. CRESTOR [Concomitant]
     Active Substance: ROSUVASTATIN CALCIUM
  24. METOCLOPRAMIDE. [Concomitant]
     Active Substance: METOCLOPRAMIDE
  25. RENVELA [Concomitant]
     Active Substance: SEVELAMER CARBONATE
  26. DULCOLAX NOS [Concomitant]
     Active Substance: BISACODYL OR DOCUSATE SODIUM

REACTIONS (10)
  - Death [Fatal]
  - Dyspepsia [Unknown]
  - Chronic kidney disease [Unknown]
  - Renal failure [Unknown]
  - Tubulointerstitial nephritis [Unknown]
  - Acute kidney injury [Unknown]
  - End stage renal disease [Unknown]
  - Hyperparathyroidism secondary [Unknown]
  - Renal injury [Unknown]
  - Nephrogenic anaemia [Unknown]

NARRATIVE: CASE EVENT DATE: 2014
